FAERS Safety Report 7757547-X (Version None)
Quarter: 2011Q3

REPORT INFORMATION
  Report Type: 
  Country: None (occurrence: None)
  Receive Date: 20110916
  Receipt Date: 20110912
  Transmission Date: 20111222
  Serious: Yes (Hospitalization)
  Sender: FDA-Public Use
  Company Number: DE-PFIZER INC-2011164516

PATIENT
  Age: 47 Year

DRUGS (1)
  1. MOROCTOCOG ALFA [Suspect]
     Dosage: UNK
     Dates: start: 20091121

REACTIONS (2)
  - DEPRESSION [None]
  - GASTROINTESTINAL INFECTION [None]
